FAERS Safety Report 5335881-0 (Version None)
Quarter: 2007Q1

REPORT INFORMATION
  Report Type: 
  Country: None (occurrence: None)
  Receive Date: 20070301
  Receipt Date: 20060215
  Transmission Date: 20070707
  Serious: Yes (Other)
  Sender: FDA-Public Use
  Company Number: 221937

PATIENT
  Age: 8 Year
  Sex: Female
  Weight: 52 kg

DRUGS (1)
  1. NUTROPIN AQ [Suspect]
     Dosage: 0.8 MG, QHS, SUBCUTANEOUS
     Route: 058

REACTIONS (1)
  - SCOLIOSIS [None]
